FAERS Safety Report 11994188 (Version 1)
Quarter: 2016Q1

REPORT INFORMATION
  Report Type: Report from Study
  Country: BR (occurrence: BR)
  Receive Date: 20160203
  Receipt Date: 20160203
  Transmission Date: 20160526
  Serious: Yes (Other)
  Sender: FDA-Public Use
  Company Number: BR-ABBVIE-16K-020-1548564-00

PATIENT
  Sex: Female

DRUGS (5)
  1. HUMIRA [Suspect]
     Active Substance: ADALIMUMAB
     Indication: CROHN^S DISEASE
     Route: 058
     Dates: start: 20150810
  2. ESCITALOPRAM [Concomitant]
     Active Substance: ESCITALOPRAM OXALATE
     Indication: DEPRESSION
     Route: 048
     Dates: start: 201406
  3. TORVAL [Concomitant]
     Active Substance: VALPROIC ACID
     Indication: PROPHYLAXIS
  4. IMURAN [Concomitant]
     Active Substance: AZATHIOPRINE
     Indication: CROHN^S DISEASE
     Route: 048
  5. TORVAL [Concomitant]
     Active Substance: VALPROIC ACID
     Indication: ANGER
     Route: 048
     Dates: start: 201406

REACTIONS (6)
  - Fistula [Unknown]
  - Foetal death [Unknown]
  - Exposure during pregnancy [Unknown]
  - Anxiety [Unknown]
  - Abortion spontaneous [Not Recovered/Not Resolved]
  - Pain [Unknown]

NARRATIVE: CASE EVENT DATE: 2015
